FAERS Safety Report 6782177-6 (Version None)
Quarter: 2010Q2

REPORT INFORMATION
  Report Type: 
  Country: None (occurrence: None)
  Receive Date: 20100618
  Receipt Date: 20100618
  Transmission Date: 20101027
  Serious: Yes (Hospitalization)
  Sender: FDA-Public Use
  Company Number: None

PATIENT
  Sex: Female
  Weight: 72.4 kg

DRUGS (3)
  1. TAXOL [Suspect]
     Dates: end: 20091224
  2. HERCEPTIN [Suspect]
     Dosage: 434 MG
     Dates: end: 20100527
  3. LETROZOLE [Concomitant]

REACTIONS (1)
  - RENAL FAILURE [None]
